FAERS Safety Report 7221681 (Version 2)
Quarter: 2013Q2

REPORT INFORMATION
  Report Type: Spontaneous
  Country: US (occurrence: US)
  Receive Date: 20091217
  Receipt Date: 20130510
  Transmission Date: 20140414
  Serious: Yes (Death, Life-Threatening, Other)
  Sender: FDA-Public Use
  Company Number: US-ELI_LILLY_AND_COMPANY-US200912002109

PATIENT
  Age: 86 Year
  Sex: Male
  Weight: 75 kg

DRUGS (6)
  1. EFFIENT [Suspect]
     Indication: ACUTE CORONARY SYNDROME
     Dosage: 10 MG, DAILY (1/D)
  2. PLAVIX [Concomitant]
  3. ASPIRIN [Concomitant]
     Indication: ACUTE CORONARY SYNDROME
  4. ZOCOR [Concomitant]
  5. LISINOPRIL [Concomitant]
  6. TOPROL XL [Concomitant]

REACTIONS (3)
  - Haemorrhage intracranial [Fatal]
  - Head injury [Fatal]
  - Fall [Fatal]
